FAERS Safety Report 11029587 (Version 1)
Quarter: 2015Q2

REPORT INFORMATION
  Report Type: Spontaneous
  Country: US (occurrence: None)
  Receive Date: 20150413
  Receipt Date: 20150413
  Transmission Date: 20150821
  Serious: No
  Sender: FDA-Public Use
  Company Number: None

PATIENT
  Age: 33 Year
  Sex: Female
  Weight: 63.5 kg

DRUGS (4)
  1. RESTASIS [Suspect]
     Active Substance: CYCLOSPORINE
     Indication: DRY EYE
     Route: 047
     Dates: start: 20140910
  2. LEVOTHYROXINE [Concomitant]
     Active Substance: LEVOTHYROXINE
  3. LIOTHYROXINE [Concomitant]
  4. RESTASIS [Suspect]
     Active Substance: CYCLOSPORINE
     Indication: SJOGREN^S SYNDROME
     Route: 047
     Dates: start: 20140910

REACTIONS (9)
  - Eye inflammation [None]
  - Eye discharge [None]
  - Photophobia [None]
  - Ocular hyperaemia [None]
  - Eye pain [None]
  - Vision blurred [None]
  - Impaired work ability [None]
  - Ocular discomfort [None]
  - Drug ineffective [None]

NARRATIVE: CASE EVENT DATE: 20140910
